FAERS Safety Report 19135097 (Version 1)
Quarter: 2021Q2

REPORT INFORMATION
  Report Type: Spontaneous
  Country: CA (occurrence: CA)
  Receive Date: 20210414
  Receipt Date: 20210414
  Transmission Date: 20210717
  Serious: Yes (Other)
  Sender: FDA-Public Use
  Company Number: CA-SAMSUNG BIOEPIS-SB-2021-08908

PATIENT
  Sex: Male

DRUGS (14)
  1. INFLIXIMAB [Suspect]
     Active Substance: INFLIXIMAB
     Indication: COLITIS ULCERATIVE
     Route: 042
  2. HUMIRA [Suspect]
     Active Substance: ADALIMUMAB
     Indication: COLITIS ULCERATIVE
     Dosage: SOLUTION SUBCUTANEOUS, UNKNOWN
     Route: 058
  3. INFLIXIMAB [Suspect]
     Active Substance: INFLIXIMAB
     Dosage: MINUS 68, MINUS 180, MINUS 96, MINUS 42
     Route: 030
  4. SERTRALINE [Concomitant]
     Active Substance: SERTRALINE HYDROCHLORIDE
     Indication: PRODUCT USED FOR UNKNOWN INDICATION
     Route: 048
  5. INFLIXIMAB [Suspect]
     Active Substance: INFLIXIMAB
     Route: 042
  6. INFLIXIMAB [Suspect]
     Active Substance: INFLIXIMAB
     Dosage: MINUS 14, MINUS 112, MINUS 178, MINUS 295, MINUS 350, MINUS 152, MINUS 269, MINUS 238, MINUS 153
     Route: 042
  7. SULFASALAZINE. [Concomitant]
     Active Substance: SULFASALAZINE
     Indication: PRODUCT USED FOR UNKNOWN INDICATION
     Dosage: UNKNOWN
     Route: 065
  8. INFLIXIMAB [Suspect]
     Active Substance: INFLIXIMAB
     Route: 042
  9. AZATHIOPRINE. [Suspect]
     Active Substance: AZATHIOPRINE
     Indication: PRODUCT USED FOR UNKNOWN INDICATION
     Dosage: UNKNOWN
     Route: 065
  10. INFLIXIMAB [Suspect]
     Active Substance: INFLIXIMAB
     Dosage: MINUS 209
     Route: 058
  11. INFLIXIMAB [Suspect]
     Active Substance: INFLIXIMAB
     Route: 030
  12. MERCAPTOPURINE. [Concomitant]
     Active Substance: MERCAPTOPURINE
     Indication: PRODUCT USED FOR UNKNOWN INDICATION
     Route: 048
  13. INFLIXIMAB [Suspect]
     Active Substance: INFLIXIMAB
     Dosage: MINUS 124, MINUS 208
     Route: 030
  14. BUDESONIDE. [Concomitant]
     Active Substance: BUDESONIDE
     Indication: PRODUCT USED FOR UNKNOWN INDICATION
     Dosage: UNKNOWN
     Route: 065

REACTIONS (12)
  - Off label use [Unknown]
  - Blood pressure fluctuation [Unknown]
  - Bronchitis [Unknown]
  - Inappropriate schedule of product administration [Unknown]
  - Intentional product use issue [Unknown]
  - Blood pressure increased [Unknown]
  - Drug hypersensitivity [Unknown]
  - Rectal haemorrhage [Unknown]
  - Condition aggravated [Unknown]
  - Weight increased [Unknown]
  - Frequent bowel movements [Unknown]
  - Heart rate decreased [Unknown]
